FAERS Safety Report 7444149-8 (Version None)
Quarter: 2011Q2

REPORT INFORMATION
  Report Type: 
  Country: None (occurrence: None)
  Receive Date: 20110428
  Receipt Date: 20110428
  Transmission Date: 20111010
  Serious: Yes (Other)
  Sender: FDA-Public Use
  Company Number: None

PATIENT
  Age: 60 Year
  Sex: Male
  Weight: 95.2554 kg

DRUGS (1)
  1. SKIN PREP PADS SMITH AND NEPHEW [Suspect]
     Indication: PULMONARY ARTERIAL HYPERTENSION
     Dosage: AS DIRECTECD

REACTIONS (2)
  - DEVICE RELATED INFECTION [None]
  - PRODUCT CONTAMINATION [None]
